FAERS Safety Report 20540686 (Version 1)
Quarter: 2022Q1

REPORT INFORMATION
  Report Type: Spontaneous
  Country: US (occurrence: None)
  Receive Date: 20220302
  Receipt Date: 20220302
  Transmission Date: 20220423
  Serious: No
  Sender: FDA-Public Use
  Company Number: None

PATIENT
  Sex: Female

DRUGS (1)
  1. COSENTYX [Suspect]
     Active Substance: SECUKINUMAB
     Indication: Psoriatic arthropathy
     Dosage: OTHER FREQUENCY : EVERY 5 WEEKS;? FREQUENCY: INJECT ONE SYRINGE SUBCUTANEOUSLY ONCE WEEKLY FOR S WEE
     Route: 058
     Dates: start: 202201

REACTIONS (1)
  - Therapy non-responder [None]
